FAERS Safety Report 14766420 (Version 1)
Quarter: 2018Q2

REPORT INFORMATION
  Report Type: Spontaneous
  Country: US (occurrence: US)
  Receive Date: 20180416
  Receipt Date: 20180416
  Transmission Date: 20180711
  Serious: Yes (Other)
  Sender: FDA-Public Use
  Company Number: US-SUNOVION-2018SUN001337

PATIENT
  Sex: Male

DRUGS (3)
  1. LATUDA [Suspect]
     Active Substance: LURASIDONE HYDROCHLORIDE
     Indication: BIPOLAR DISORDER
     Dosage: 20 MG, UNK
     Route: 048
  2. LATUDA [Suspect]
     Active Substance: LURASIDONE HYDROCHLORIDE
     Dosage: 40 MG, UNK
     Route: 048
  3. LATUDA [Suspect]
     Active Substance: LURASIDONE HYDROCHLORIDE
     Dosage: 60 MG, UNK
     Route: 048

REACTIONS (7)
  - Thinking abnormal [Not Recovered/Not Resolved]
  - Akathisia [Recovered/Resolved]
  - Morbid thoughts [Not Recovered/Not Resolved]
  - Suicidal ideation [Recovered/Resolved]
  - Social avoidant behaviour [Not Recovered/Not Resolved]
  - Autophobia [Not Recovered/Not Resolved]
  - Restlessness [Recovered/Resolved]
